FAERS Safety Report 5507066-6 (Version None)
Quarter: 2007Q4

REPORT INFORMATION
  Report Type: 
  Country: None (occurrence: None)
  Receive Date: 20071102
  Receipt Date: 20071025
  Transmission Date: 20080405
  Serious: Yes (Other)
  Sender: FDA-Public Use
  Company Number: 2007332467

PATIENT
  Age: 45 Year
  Sex: Female
  Weight: 87.0906 kg

DRUGS (2)
  1. LISTERINE WHITENING PRE-BRUSH RINSE (NO ACTIVE INGREDIENT) [Suspect]
     Indication: DENTAL DISORDER PROPHYLAXIS
     Dosage: 3 TEASPOONS ONCE, ORAL
     Route: 048
     Dates: start: 20071003, end: 20071003
  2. XOPENEX [Concomitant]

REACTIONS (1)
  - THERMAL BURN [None]
